FAERS Safety Report 14679065 (Version 1)
Quarter: 2018Q1

REPORT INFORMATION
  Report Type: Spontaneous
  Country: TH (occurrence: TH)
  Receive Date: 20180326
  Receipt Date: 20180326
  Transmission Date: 20180509
  Serious: Yes (Other)
  Sender: FDA-Public Use
  Company Number: PHHY2018TH047116

PATIENT
  Age: 73 Year
  Sex: Male

DRUGS (4)
  1. VOTRIENT [Suspect]
     Active Substance: PAZOPANIB HYDROCHLORIDE
     Indication: RENAL CELL CARCINOMA
     Dosage: 400 MG/DAY, QD
     Route: 065
     Dates: start: 20141117
  2. VOTRIENT [Suspect]
     Active Substance: PAZOPANIB HYDROCHLORIDE
     Dosage: 800 MG/DAY, QD
     Route: 065
     Dates: start: 201508
  3. VOTRIENT [Suspect]
     Active Substance: PAZOPANIB HYDROCHLORIDE
     Dosage: 400 MG/DAY, QD
     Route: 065
     Dates: start: 20171212
  4. VOTRIENT [Suspect]
     Active Substance: PAZOPANIB HYDROCHLORIDE
     Dosage: 600 MG/DAY, QD
     Route: 065

REACTIONS (10)
  - Renal cell carcinoma [Unknown]
  - Pulmonary mass [Unknown]
  - Fatigue [Unknown]
  - Mucosal inflammation [Unknown]
  - Angina unstable [Unknown]
  - Palmar-plantar erythrodysaesthesia syndrome [Unknown]
  - Blood pressure systolic increased [Unknown]
  - Chest pain [Unknown]
  - Malignant neoplasm progression [Unknown]
  - Coronary artery disease [Unknown]

NARRATIVE: CASE EVENT DATE: 201508
